FAERS Safety Report 12477704 (Version 1)
Quarter: 2016Q2

REPORT INFORMATION
  Report Type: Spontaneous
  Country: US (occurrence: US)
  Receive Date: 20160617
  Receipt Date: 20160617
  Transmission Date: 20160815
  Serious: No
  Sender: FDA-Public Use
  Company Number: US-ALLERGAN-1654597US

PATIENT
  Age: 69 Year
  Sex: Male
  Weight: 75.74 kg

DRUGS (1)
  1. VIBERZI [Suspect]
     Active Substance: ELUXADOLINE
     Indication: GASTRIC DISORDER
     Dosage: 100 MG, QD
     Route: 048
     Dates: start: 20160416, end: 20160420

REACTIONS (6)
  - Nasal pruritus [Not Recovered/Not Resolved]
  - Gait disturbance [Unknown]
  - Off label use [Unknown]
  - Epistaxis [Not Recovered/Not Resolved]
  - Dizziness [Unknown]
  - Rash generalised [Unknown]

NARRATIVE: CASE EVENT DATE: 201604
